FAERS Safety Report 8797525 (Version 2)
Quarter: 2012Q4

REPORT INFORMATION
  Report Type: 
  Country: US (occurrence: US)
  Receive Date: 20120919
  Receipt Date: 20121004
  Transmission Date: 20130627
  Serious: Yes (Hospitalization, Other)
  Sender: FDA-Public Use
  Company Number: US-ROCHE-1130540

PATIENT
  Age: 96 Year
  Sex: Male

DRUGS (11)
  1. LUCENTIS [Suspect]
     Indication: AGE-RELATED MACULAR DEGENERATION
     Dosage: right eye
     Route: 050
     Dates: start: 20111017
  2. LUCENTIS [Suspect]
     Dosage: Right eye
     Route: 065
     Dates: start: 20111128
  3. LUCENTIS [Suspect]
     Route: 050
     Dates: start: 20120811
  4. LUCENTIS [Suspect]
     Dosage: in right eye
     Route: 050
     Dates: start: 20110829
  5. FINASTERIDE [Concomitant]
     Indication: BENIGN PROSTATIC HYPERPLASIA
     Route: 048
  6. PLAVIX [Concomitant]
     Indication: CEREBROVASCULAR ACCIDENT
     Route: 048
  7. NEXIUM [Concomitant]
     Indication: GASTROOESOPHAGEAL REFLUX DISEASE
     Route: 048
  8. FELODIPINE [Concomitant]
     Indication: HYPERTENSION
     Route: 048
  9. COZAAR [Concomitant]
     Indication: HYPERTENSION
     Route: 048
  10. DOXAZOSIN [Concomitant]
     Route: 048
  11. CHLORPHENIRAMINE [Concomitant]
     Route: 065

REACTIONS (1)
  - Myocardial infarction [Recovered/Resolved]
